FAERS Safety Report 10399606 (Version 1)
Quarter: 2014Q3

REPORT INFORMATION
  Report Type: Spontaneous
  Country: US (occurrence: US)
  Receive Date: 20140821
  Receipt Date: 20140821
  Transmission Date: 20150326
  Serious: Yes (Other)
  Sender: FDA-Public Use
  Company Number: US-ASTRAZENECA-2014SE61222

PATIENT
  Age: 67 Year
  Sex: Female
  Weight: 80.7 kg

DRUGS (6)
  1. ANASTROLZOLE [Suspect]
     Active Substance: ANASTROZOLE
     Indication: BREAST CANCER
     Route: 048
     Dates: start: 201201
  2. LISINOPRIL. [Suspect]
     Active Substance: LISINOPRIL
     Indication: BLOOD PRESSURE
     Route: 048
     Dates: start: 201109
  3. ATENOLOL. [Suspect]
     Active Substance: ATENOLOL
     Indication: BLOOD PRESSURE
     Route: 048
     Dates: start: 201109
  4. LISINOPRIL. [Suspect]
     Active Substance: LISINOPRIL
     Indication: BLOOD PRESSURE
     Dosage: 20MG  A HALF TABLET BID
     Route: 048
     Dates: start: 201106
  5. HYDROCHLOROTHIAZIDE. [Concomitant]
     Active Substance: HYDROCHLOROTHIAZIDE
     Indication: HYPERTENSION
     Dates: start: 201106
  6. ATENOLOL. [Suspect]
     Active Substance: ATENOLOL
     Indication: BLOOD PRESSURE
     Dosage: 25MG A HALF TABLET BID
     Route: 048
     Dates: start: 201106

REACTIONS (10)
  - Mental impairment [Unknown]
  - Off label use [Recovered/Resolved]
  - Hypertension [Unknown]
  - Muscle spasms [Unknown]
  - Loss of consciousness [Recovered/Resolved]
  - Speech disorder [Recovered/Resolved]
  - Dehydration [Unknown]
  - Crying [Unknown]
  - Intentional product misuse [Not Recovered/Not Resolved]
  - Hyperhidrosis [Not Recovered/Not Resolved]

NARRATIVE: CASE EVENT DATE: 2011
